FAERS Safety Report 9846387 (Version 1)
Quarter: 2014Q1

REPORT INFORMATION
  Report Type: Spontaneous
  Country: FR (occurrence: FR)
  Receive Date: 20140127
  Receipt Date: 20140127
  Transmission Date: 20141002
  Serious: Yes (Hospitalization)
  Sender: FDA-Public Use
  Company Number: FR-TEVA-457387ISR

PATIENT
  Age: 80 Year
  Sex: Male

DRUGS (15)
  1. BROMAZEPAM 6MG [Suspect]
     Dosage: .75 TABLET DAILY;
     Route: 048
     Dates: end: 20130816
  2. ACTIQ [Suspect]
     Indication: PRODUCT USED FOR UNKNOWN INDICATION
     Dosage: 1600 MICROGRAM DAILY;
     Route: 048
  3. DUROGESIC [Suspect]
     Route: 062
     Dates: end: 20130816
  4. DUROGESIC [Suspect]
     Route: 062
     Dates: start: 20130816
  5. DOGMATIL 50MG [Suspect]
     Route: 048
  6. METFORMINE [Concomitant]
     Dosage: 2550 MILLIGRAM DAILY;
     Route: 048
  7. MACROGOL 4000MG [Concomitant]
     Route: 048
     Dates: end: 20130813
  8. VALSARTAN 80MG [Concomitant]
     Route: 048
  9. PERMIXON 160MG [Concomitant]
     Route: 048
  10. CELECTOL 200MG [Concomitant]
     Route: 048
  11. PARIET 10 MG [Concomitant]
     Route: 048
  12. SEROPLEX 20MG [Concomitant]
     Route: 048
  13. JOSIR L.P. 0.4MG [Concomitant]
     Route: 048
  14. KARDEGIC 160MG [Concomitant]
     Route: 048
  15. DOLIPRANE 1G [Concomitant]
     Route: 048

REACTIONS (7)
  - Confusional state [Recovering/Resolving]
  - Depressive symptom [Recovering/Resolving]
  - General physical health deterioration [Unknown]
  - Decreased appetite [Unknown]
  - Psychomotor retardation [Unknown]
  - Pain [Unknown]
  - Complex regional pain syndrome [Unknown]
